FAERS Safety Report 23870979 (Version 1)
Quarter: 2024Q2

REPORT INFORMATION
  Report Type: Spontaneous
  Country: GB (occurrence: GB)
  Receive Date: 20240518
  Receipt Date: 20240518
  Transmission Date: 20240716
  Serious: Yes (Other)
  Sender: FDA-Public Use
  Company Number: GB-MHRA-EMIS-612-f99574b7-bf4c-4020-a4f4-7f188ab78812

PATIENT
  Age: 62 Year
  Sex: Female
  Weight: 77 kg

DRUGS (6)
  1. MONTELUKAST [Suspect]
     Active Substance: MONTELUKAST SODIUM
     Indication: Asthma
     Dosage: 1 DOSAGE FORM, ONCE A DAY, AT NIGHT
     Route: 065
     Dates: start: 20240402, end: 20240424
  2. ERYTHROMYCIN [Concomitant]
     Active Substance: ERYTHROMYCIN
     Indication: Asthma
     Dosage: UNK, 4 TWICE DAILY FOR 7 DAYS
     Route: 065
     Dates: start: 20240306, end: 20240418
  3. FEXOFENADINE [Concomitant]
     Active Substance: FEXOFENADINE HYDROCHLORIDE
     Indication: Asthma
     Dosage: 1 DOSAGE FORM, ONCE A DAY
     Route: 065
     Dates: start: 20240402
  4. HYLO FORTE [Concomitant]
     Indication: Product used for unknown indication
     Dosage: 1 DOSAGE FORM, FOUR TIMES/DAY, 10ML, APPLY
     Route: 065
     Dates: start: 20240312, end: 20240424
  5. MICONAZOLE [Concomitant]
     Active Substance: MICONAZOLE
     Indication: Rash
     Dosage: 1 DOSAGE FORM, TWO TIMES A DAYFOR UPTO 4 WEEKS
     Route: 065
     Dates: start: 20240312, end: 20240424
  6. UNSPECIFIED INGREDIENT [Concomitant]
     Active Substance: UNSPECIFIED INGREDIENT
     Indication: Product used for unknown indication
     Dosage: UNK
     Route: 055

REACTIONS (5)
  - Headache [Recovered/Resolved]
  - Dry mouth [Unknown]
  - Nasal dryness [Unknown]
  - Contusion [Unknown]
  - Paraesthesia [Unknown]

NARRATIVE: CASE EVENT DATE: 20240403
